FAERS Safety Report 4834307-0 (Version None)
Quarter: 2005Q4

REPORT INFORMATION
  Report Type: 
  Country: None (occurrence: None)
  Receive Date: 20051122
  Receipt Date: 20051110
  Transmission Date: 20060501
  Serious: Yes (Hospitalization)
  Sender: FDA-Public Use
  Company Number: SE-ROCHE-424365

PATIENT
  Age: 59 Year
  Sex: Female

DRUGS (1)
  1. IKTORIVIL [Suspect]
     Indication: BLEPHAROSPASM
     Route: 065
     Dates: start: 20051020, end: 20051022

REACTIONS (4)
  - DIZZINESS [None]
  - FALL [None]
  - SENSORY DISTURBANCE [None]
  - SYNCOPE [None]
